FAERS Safety Report 17992132 (Version 2)
Quarter: 2020Q3

REPORT INFORMATION
  Report Type: Spontaneous
  Country: BR (occurrence: BR)
  Receive Date: 20200707
  Receipt Date: 20200810
  Transmission Date: 20201103
  Serious: Yes (Other)
  Sender: FDA-Public Use
  Company Number: BR-NOVOPROD-737840

PATIENT
  Sex: Male
  Weight: 73 kg

DRUGS (1)
  1. NOVORAPID [Suspect]
     Active Substance: INSULIN ASPART
     Indication: TYPE 1 DIABETES MELLITUS
     Dosage: 10 IU BEFORE MEALS (STARTED MORE THAN 3 YEARS AGO)
     Route: 065

REACTIONS (4)
  - Diabetic retinopathy [Not Recovered/Not Resolved]
  - Eye haemorrhage [Recovered/Resolved]
  - Device occlusion [Unknown]
  - Hyperglycaemia [Recovered/Resolved]

NARRATIVE: CASE EVENT DATE: 201912
